FAERS Safety Report 15909310 (Version 1)
Quarter: 2019Q1

REPORT INFORMATION
  Report Type: Spontaneous
  Country: US (occurrence: US)
  Receive Date: 20190204
  Receipt Date: 20190204
  Transmission Date: 20190417
  Serious: No
  Sender: FDA-Public Use
  Company Number: US-ABBVIE-18K-163-2286446-00

PATIENT
  Age: 65 Year
  Sex: Male

DRUGS (2)
  1. HUMIRA [Suspect]
     Active Substance: ADALIMUMAB
     Route: 058
     Dates: start: 2018, end: 201802
  2. HUMIRA [Suspect]
     Active Substance: ADALIMUMAB
     Indication: ARTHRITIS REACTIVE
     Route: 058
     Dates: start: 201706, end: 2018

REACTIONS (3)
  - Wrong technique in product usage process [Unknown]
  - Injection site bruising [Unknown]
  - Cough [Recovering/Resolving]

NARRATIVE: CASE EVENT DATE: 201711
